FAERS Safety Report 15544381 (Version 1)
Quarter: 2018Q4

REPORT INFORMATION
  Report Type: Spontaneous
  Country: CA (occurrence: CA)
  Receive Date: 20181024
  Receipt Date: 20181024
  Transmission Date: 20190205
  Serious: Yes (Hospitalization)
  Sender: FDA-Public Use
  Company Number: CA-TEVA-2018-CA-964960

PATIENT
  Age: 21 Year
  Sex: Male

DRUGS (3)
  1. CYTARABINE INJECTION [Suspect]
     Active Substance: CYTARABINE
     Indication: LEUKAEMIA
     Route: 042
  2. DAUNORUBICIN HYDROCHLORIDE FOR INJECTION [Suspect]
     Active Substance: DAUNORUBICIN HYDROCHLORIDE
     Indication: LEUKAEMIA
     Route: 065
  3. ACETAMINOPHEN. [Suspect]
     Active Substance: ACETAMINOPHEN
     Indication: PYREXIA
     Route: 065

REACTIONS (6)
  - Decreased appetite [Unknown]
  - Pyrexia [Unknown]
  - Dyspnoea [Unknown]
  - Neutropenia [Unknown]
  - Pulmonary oedema [Unknown]
  - Hypotension [Unknown]
